FAERS Safety Report 5480169-0 (Version None)
Quarter: 2007Q4

REPORT INFORMATION
  Report Type: 
  Country: None (occurrence: None)
  Receive Date: 20071003
  Receipt Date: 20070919
  Transmission Date: 20080405
  Serious: Yes (Hospitalization)
  Sender: FDA-Public Use
  Company Number: 013189

PATIENT
  Age: 75 Year
  Sex: Male
  Weight: 84 kg

DRUGS (13)
  1. PRIALT [Suspect]
     Indication: PAIN
     Dosage: 0.16 UG, ONCE/HOUR, INTRATHECAL; 0.1 UG, ONCE/HOUR, INTRATHECAL
     Route: 037
     Dates: start: 20070829
  2. ANTITHROMBOTIC AGENTS [Concomitant]
  3. HYDRALAZINE HCL [Concomitant]
  4. ANTIDEPRESSANTS [Concomitant]
  5. NORVASC [Concomitant]
  6. ALDACTONE [Concomitant]
  7. ENALAPRIL HCT                    (ENALAPRIL MALEATE, HYDROCHLOROTHIAZI [Concomitant]
  8. MOLSIDOMINE                (MOLSIDOMINE) [Concomitant]
  9. NEURONTIN [Concomitant]
  10. DIGIMERCK       (DIGITOXIN) [Concomitant]
  11. PASPERTIN                        (METOCLOPRAMIDE HYDROCHLORIDE) [Concomitant]
  12. CYMBALTA [Concomitant]
  13. ALL OTHER THERAPEUTIC PRODUCTS [Concomitant]

REACTIONS (6)
  - ALANINE AMINOTRANSFERASE INCREASED [None]
  - ASPARTATE AMINOTRANSFERASE INCREASED [None]
  - EPILEPSY [None]
  - MOOD ALTERED [None]
  - SUICIDAL IDEATION [None]
  - SYNCOPE [None]
